FAERS Safety Report 7266190-0 (Version None)
Quarter: 2011Q1

REPORT INFORMATION
  Report Type: 
  Country: None (occurrence: None)
  Receive Date: 20110131
  Receipt Date: 20100813
  Transmission Date: 20110831
  Serious: No
  Sender: FDA-Public Use
  Company Number: US-ABBOTT-10P-163-0663874-00

PATIENT
  Sex: Male

DRUGS (2)
  1. CASODEX [Concomitant]
     Indication: PRODUCT USED FOR UNKNOWN INDICATION
     Dosage: PILL FOR 30 DAYS
  2. LUPRON DEPOT [Suspect]
     Indication: PROSTATE CANCER

REACTIONS (4)
  - WEIGHT INCREASED [None]
  - MOOD SWINGS [None]
  - HOT FLUSH [None]
  - FATIGUE [None]
